FAERS Safety Report 13633128 (Version 1)
Quarter: 2017Q2

REPORT INFORMATION
  Report Type: Spontaneous
  Country: US (occurrence: US)
  Receive Date: 20170531
  Receipt Date: 20170531
  Transmission Date: 20170830
  Serious: No
  Sender: FDA-Public Use
  Company Number: US-ASTELLAS-1512469

PATIENT
  Sex: Female

DRUGS (14)
  1. NEXIUM [Concomitant]
     Active Substance: ESOMEPRAZOLE MAGNESIUM
  2. ASPIR 81 [Concomitant]
  3. LASIX [Concomitant]
     Active Substance: FUROSEMIDE
  4. ZYRTEC [Concomitant]
     Active Substance: CETIRIZINE HYDROCHLORIDE
  5. LIPITOR [Concomitant]
     Active Substance: ATORVASTATIN CALCIUM
  6. ATIVAN [Concomitant]
     Active Substance: LORAZEPAM
  7. LAMICTAL [Concomitant]
     Active Substance: LAMOTRIGINE
  8. TARCEVA [Suspect]
     Active Substance: ERLOTINIB HYDROCHLORIDE
     Indication: LUNG NEOPLASM MALIGNANT
     Route: 048
     Dates: start: 20140127
  9. MELOXICAM. [Concomitant]
     Active Substance: MELOXICAM
  10. COLCRYS [Concomitant]
     Active Substance: COLCHICINE
  11. ISOSORBIDE MONONITRATE ER [Concomitant]
     Active Substance: ISOSORBIDE MONONITRATE
  12. ALLOPURINOL. [Concomitant]
     Active Substance: ALLOPURINOL
     Route: 065
  13. ULORIC [Concomitant]
     Active Substance: FEBUXOSTAT
  14. ACETAMINOPHEN. [Concomitant]
     Active Substance: ACETAMINOPHEN

REACTIONS (3)
  - Flatulence [Unknown]
  - Eructation [Unknown]
  - Diarrhoea [Unknown]
